FAERS Safety Report 7875506-3 (Version None)
Quarter: 2011Q4

REPORT INFORMATION
  Report Type: 
  Country: None (occurrence: None)
  Receive Date: 20111031
  Receipt Date: 20111025
  Transmission Date: 20120403
  Serious: No
  Sender: FDA-Public Use
  Company Number: PHEH2011US07941

PATIENT
  Sex: Female

DRUGS (10)
  1. DEXILANT [Concomitant]
  2. ATENOLOL [Concomitant]
  3. TRIAMTEREN [Concomitant]
  4. CELEBREX [Concomitant]
  5. CITALOPRAM HYDROBROMIDE [Concomitant]
  6. ALLOPURINOL [Concomitant]
  7. HYDROCHLOROTHIAZIDE [Concomitant]
  8. TRAMADOL HCL [Concomitant]
  9. HYDROMORPHONE HCL [Concomitant]
  10. TASIGNA [Suspect]
     Indication: NEOPLASM MALIGNANT
     Dosage: 400 MG, BID
     Route: 048
     Dates: start: 20111008

REACTIONS (2)
  - GAIT DISTURBANCE [None]
  - PAIN IN EXTREMITY [None]
